FAERS Safety Report 8302439-0 (Version None)
Quarter: 2012Q2

REPORT INFORMATION
  Report Type: 
  Country: None (occurrence: None)
  Receive Date: 20120420
  Receipt Date: 20120404
  Transmission Date: 20120825
  Serious: Yes (Other)
  Sender: FDA-Public Use
  Company Number: CHPA2012US008911

PATIENT
  Sex: Female

DRUGS (1)
  1. NUPERCAINAL HEMORRHOIDAL/ANES OINTMENT [Suspect]
     Indication: HAEMORRHOIDS
     Dosage: UNK, UNK
     Route: 061
     Dates: start: 19720101

REACTIONS (3)
  - HAEMORRHOIDS [None]
  - CONSTIPATION [None]
  - CEREBROVASCULAR ACCIDENT [None]
